FAERS Safety Report 12782933 (Version 1)
Quarter: 2016Q3

REPORT INFORMATION
  Report Type: Spontaneous
  Country: US (occurrence: US)
  Receive Date: 20160927
  Receipt Date: 20160927
  Transmission Date: 20161109
  Serious: No
  Sender: FDA-Public Use
  Company Number: US-PFIZER INC-2016444309

PATIENT
  Age: 33 Year
  Sex: Female
  Weight: 66 kg

DRUGS (2)
  1. ALPRAZOLAM. [Suspect]
     Active Substance: ALPRAZOLAM
     Indication: PANIC DISORDER
  2. ALPRAZOLAM. [Suspect]
     Active Substance: ALPRAZOLAM
     Indication: GENERALISED ANXIETY DISORDER
     Dosage: 3 MG, 1X/DAY
     Route: 048

REACTIONS (6)
  - Hyperventilation [Unknown]
  - Tremor [Unknown]
  - Hypoaesthesia [Unknown]
  - Crying [Unknown]
  - Chest pain [Unknown]
  - Drug ineffective [Unknown]
